FAERS Safety Report 6818954-2 (Version None)
Quarter: 2010Q3

REPORT INFORMATION
  Report Type: 
  Country: None (occurrence: None)
  Receive Date: 20100707
  Receipt Date: 20100303
  Transmission Date: 20110219
  Serious: Yes (Other)
  Sender: FDA-Public Use
  Company Number: US-ASTRAZENECA-2009SE17853

PATIENT
  Age: 60 Year

DRUGS (6)
  1. SEROQUEL [Suspect]
     Dosage: 25 MG TO 150 MG
     Route: 048
     Dates: start: 20050124
  2. LIPITOR [Concomitant]
     Dosage: 10 MG TO 40 MG.
     Dates: start: 20030331
  3. TRAZODONE HYDROCHLORIDE [Concomitant]
     Dates: start: 20050131
  4. FLUOXETINE [Concomitant]
     Dates: start: 20050120
  5. ZOLOFT [Concomitant]
     Dates: start: 20061221
  6. LISINOPRIL [Concomitant]
     Dates: start: 20061221

REACTIONS (2)
  - DIABETIC NEUROPATHY [None]
  - TYPE 2 DIABETES MELLITUS [None]
